FAERS Safety Report 18944847 (Version 1)
Quarter: 2021Q1

REPORT INFORMATION
  Report Type: Report from Study
  Country: IN (occurrence: IN)
  Receive Date: 20210226
  Receipt Date: 20210226
  Transmission Date: 20210420
  Serious: Yes (Other)
  Sender: FDA-Public Use
  Company Number: IN-ACCORD-218348

PATIENT

DRUGS (4)
  1. MITOMYCIN. [Suspect]
     Active Substance: MITOMYCIN
     Indication: CATARACT
     Dosage: 0.4 MG/ML
  2. BUPIVACAINE. [Suspect]
     Active Substance: BUPIVACAINE
     Indication: ANAESTHESIA
     Dosage: 2 CC OF 0.5%
  3. HYALURONIDASE/HYALURONIDASE SODIUM (HYALURONIDASE) [Suspect]
     Active Substance: HYALURONIDASE
     Indication: ANAESTHESIA
     Dosage: 1500 IU/ML
  4. LIDOCAINE. [Suspect]
     Active Substance: LIDOCAINE
     Indication: ANAESTHESIA
     Dosage: 5 CC OF 2%

REACTIONS (3)
  - Flat anterior chamber of eye [Recovered/Resolved]
  - Choroidal detachment [Recovered/Resolved]
  - Conjunctival filtering bleb leak [Recovered/Resolved]
